FAERS Safety Report 6672064-6 (Version None)
Quarter: 2010Q2

REPORT INFORMATION
  Report Type: 
  Country: None (occurrence: None)
  Receive Date: 20100407
  Receipt Date: 20100407
  Transmission Date: 20101027
  Serious: Yes (Other)
  Sender: FDA-Public Use
  Company Number: None

PATIENT
  Age: 71 Year
  Sex: Female
  Weight: 73.4827 kg

DRUGS (1)
  1. RECLAST [Suspect]
     Indication: OSTEOPOROSIS
     Dosage: 5 MG/100 ML Q YEAR IV
     Route: 042
     Dates: start: 20100303, end: 20100303

REACTIONS (9)
  - ABASIA [None]
  - ADDISON'S DISEASE [None]
  - ARTHRALGIA [None]
  - DEHYDRATION [None]
  - DEPRESSED LEVEL OF CONSCIOUSNESS [None]
  - DIARRHOEA [None]
  - JOINT SWELLING [None]
  - TRISMUS [None]
  - VOMITING [None]
